FAERS Safety Report 9543229 (Version 1)
Quarter: 2013Q3

REPORT INFORMATION
  Report Type: Spontaneous
  Country: US (occurrence: US)
  Receive Date: 20130923
  Receipt Date: 20130923
  Transmission Date: 20140515
  Serious: No
  Sender: FDA-Public Use
  Company Number: US-TEVA-433584USA

PATIENT
  Age: 45 Year
  Sex: Female

DRUGS (2)
  1. TRISENOX [Suspect]
     Indication: ACUTE PROMYELOCYTIC LEUKAEMIA
  2. ALL TRANS-RETINOIC ACID [Concomitant]
     Indication: ACUTE PROMYELOCYTIC LEUKAEMIA
     Dosage: 80 MILLIGRAM DAILY;

REACTIONS (3)
  - Neurological symptom [Unknown]
  - Hypoaesthesia [Unknown]
  - Paraesthesia [Unknown]
